FAERS Safety Report 8960381 (Version 1)
Quarter: 2012Q4

REPORT INFORMATION
  Report Type: 
  Country: US (occurrence: US)
  Receive Date: 20121211
  Receipt Date: 20121211
  Transmission Date: 20130627
  Serious: No
  Sender: FDA-Public Use
  Company Number: US-009507513-1212USA003018

PATIENT
  Sex: Female

DRUGS (1)
  1. NASONEX [Suspect]
     Indication: HYPERSENSITIVITY
     Dosage: 1 spray in each nostril once a day

REACTIONS (2)
  - Nasal discomfort [Recovered/Resolved]
  - Epistaxis [Recovered/Resolved]
